FAERS Safety Report 11552428 (Version 1)
Quarter: 2015Q3

REPORT INFORMATION
  Report Type: Spontaneous
  Country: US (occurrence: None)
  Receive Date: 20150924
  Receipt Date: 20150924
  Transmission Date: 20151125
  Serious: Yes (Life-Threatening, Hospitalization, Disabling, Other)
  Sender: FDA-Public Use
  Company Number: None

PATIENT
  Age: 59 Year
  Sex: Female

DRUGS (8)
  1. THYRULAR [Concomitant]
  2. RANEXA [Concomitant]
     Active Substance: RANOLAZINE
  3. FISH OIL [Concomitant]
     Active Substance: FISH OIL
  4. ARIMIDEX [Suspect]
     Active Substance: ANASTROZOLE
     Indication: BREAST CANCER
     Route: 048
     Dates: start: 200604, end: 201004
  5. CENTRUM WOMENS D3 [Concomitant]
  6. PROTONIX [Concomitant]
     Active Substance: PANTOPRAZOLE SODIUM
  7. CRESTOR [Concomitant]
     Active Substance: ROSUVASTATIN CALCIUM
  8. CALCIUM [Concomitant]
     Active Substance: CALCIUM

REACTIONS (6)
  - Alopecia [None]
  - General physical health deterioration [None]
  - Laboratory test abnormal [None]
  - Asthenia [None]
  - Malaise [None]
  - Amnesia [None]

NARRATIVE: CASE EVENT DATE: 2006
